FAERS Safety Report 11231816 (Version 1)
Quarter: 2015Q2

REPORT INFORMATION
  Report Type: Spontaneous
  Country: US (occurrence: None)
  Receive Date: 20150630
  Receipt Date: 20150630
  Transmission Date: 20150821
  Serious: Yes (Life-Threatening)
  Sender: FDA-Public Use
  Company Number: None

PATIENT
  Age: 61 Year
  Sex: Female

DRUGS (1)
  1. HUMIRA [Suspect]
     Active Substance: ADALIMUMAB
     Dosage: HUMIRA, 40MG, QOW
     Dates: start: 20130716, end: 20150626

REACTIONS (2)
  - Hepatitis C virus test positive [None]
  - Hepatitis B virus test positive [None]

NARRATIVE: CASE EVENT DATE: 20150626
